FAERS Safety Report 5916852-X (Version None)
Quarter: 2008Q4

REPORT INFORMATION
  Report Type: 
  Country: None (occurrence: None)
  Receive Date: 20081013
  Receipt Date: 20081003
  Transmission Date: 20090506
  Serious: Yes (Hospitalization, Other)
  Sender: FDA-Public Use
  Company Number: US-PFIZER INC-2008083642

PATIENT
  Sex: Male
  Weight: 71 kg

DRUGS (2)
  1. CAMPTOSAR [Suspect]
     Indication: COLORECTAL CANCER
     Route: 042
  2. COUMADIN [Concomitant]

REACTIONS (2)
  - BLINDNESS [None]
  - DIZZINESS [None]
